FAERS Safety Report 8362636 (Version 2)
Quarter: 2012Q4

REPORT INFORMATION
  Report Type: 
  Country: US (occurrence: US)
  Receive Date: 20120130
  Receipt Date: 20121227
  Transmission Date: 20130627
  Serious: Yes (Hospitalization, Disabling, Other)
  Sender: FDA-Public Use
  Company Number: US-ELI_LILLY_AND_COMPANY-US201201007978

PATIENT
  Sex: Male

DRUGS (8)
  1. BYETTA [Suspect]
     Dosage: 5 ug, bid
     Route: 058
  2. BYETTA [Suspect]
     Dosage: 10 ug, bid
     Route: 058
  3. TRICOR [Concomitant]
     Dosage: 145 mg, each evening
  4. METFORMIN HYDROCHLORIDE W/PIOGLITAZONE HYDROC [Concomitant]
     Dosage: 1 DF, bid
  5. NIASPAN [Concomitant]
     Dosage: 1500 mg, each evening
  6. AMARYL [Concomitant]
     Dosage: 2 mg, qd
  7. NOVOLOG [Concomitant]
  8. LOVAZA [Concomitant]
     Dosage: 1 DF, tid

REACTIONS (6)
  - Cholecystectomy [Unknown]
  - Splenectomy [Unknown]
  - Pancreatic abscess [Unknown]
  - Pancreatitis acute [Unknown]
  - Hypertriglyceridaemia [Unknown]
  - Weight decreased [Unknown]
